FAERS Safety Report 10764660 (Version 4)
Quarter: 2020Q2

REPORT INFORMATION
  Report Type: Spontaneous
  Country: CA (occurrence: CA)
  Receive Date: 20150205
  Receipt Date: 20200504
  Transmission Date: 20200713
  Serious: Yes (Other)
  Sender: FDA-Public Use
  Company Number: CA-ROCHE-1532832

PATIENT

DRUGS (11)
  1. HALOPERIDOL. [Concomitant]
     Active Substance: HALOPERIDOL
     Route: 065
  2. QUETIAPINE. [Concomitant]
     Active Substance: QUETIAPINE
     Route: 065
  3. LOXAPINE. [Concomitant]
     Active Substance: LOXAPINE
     Route: 065
  4. PHENYTOIN. [Concomitant]
     Active Substance: PHENYTOIN
  5. LORAZEPAM. [Suspect]
     Active Substance: LORAZEPAM
     Indication: PRODUCT USED FOR UNKNOWN INDICATION
     Route: 065
  6. MIDAZOLAM. [Suspect]
     Active Substance: MIDAZOLAM
     Indication: PRODUCT USED FOR UNKNOWN INDICATION
     Route: 030
  7. CLONIDINE. [Concomitant]
     Active Substance: CLONIDINE
     Route: 065
  8. VALPROIC ACID. [Concomitant]
     Active Substance: VALPROIC ACID
  9. PHENOBARBITAL. [Concomitant]
     Active Substance: PHENOBARBITAL
     Route: 065
  10. CLONAZEPAM. [Suspect]
     Active Substance: CLONAZEPAM
     Indication: PRODUCT USED FOR UNKNOWN INDICATION
     Route: 048
  11. DIAZEPAM. [Suspect]
     Active Substance: DIAZEPAM
     Indication: PRODUCT USED FOR UNKNOWN INDICATION
     Route: 065

REACTIONS (3)
  - Respiratory depression [Unknown]
  - Sedation [Unknown]
  - Fall [Unknown]
